FAERS Safety Report 7344037-1 (Version None)
Quarter: 2011Q1

REPORT INFORMATION
  Report Type: 
  Country: None (occurrence: None)
  Receive Date: 20110310
  Receipt Date: 20100507
  Transmission Date: 20110831
  Serious: No
  Sender: FDA-Public Use
  Company Number: A0858641A

PATIENT
  Age: 36 Year
  Sex: Male

DRUGS (2)
  1. NICORETTE [Suspect]
     Dates: start: 20100406, end: 20100426
  2. NICORETTE [Suspect]
     Dates: start: 20100426

REACTIONS (3)
  - DRUG ADMINISTRATION ERROR [None]
  - FOAMING AT MOUTH [None]
  - NICOTINE DEPENDENCE [None]
